FAERS Safety Report 24403731 (Version 1)
Quarter: 2024Q4

REPORT INFORMATION
  Report Type: Report from Study
  Country: IT (occurrence: IT)
  Receive Date: 20241007
  Receipt Date: 20241007
  Transmission Date: 20250115
  Serious: No
  Sender: ROCHE
  Company Number: IT-ROCHE-2667800

PATIENT
  Age: 56 Year
  Sex: Female

DRUGS (1)
  1. OBINUTUZUMAB [Suspect]
     Active Substance: OBINUTUZUMAB
     Indication: Follicular lymphoma
     Dosage: INDUCTION PHASE DAY 1, 8, 15 OF CYCLE 1 AND DAY 1 OF CYCLES 2-6 OR 2-8 (AS PER PROTOCOL). ON 17/JUN/
     Route: 042
     Dates: start: 20190812

REACTIONS (3)
  - Paraesthesia [Recovered/Resolved]
  - Off label use [Unknown]
  - Arthralgia [Recovered/Resolved]

NARRATIVE: CASE EVENT DATE: 20200301
